FAERS Safety Report 9009534 (Version 3)
Quarter: 2013Q1

REPORT INFORMATION
  Report Type: Report from Study
  Country: US (occurrence: US)
  Receive Date: 20130110
  Receipt Date: 20130308
  Transmission Date: 20140127
  Serious: Yes (Hospitalization)
  Sender: FDA-Public Use
  Company Number: US-ROCHE-1178309

PATIENT
  Sex: Female

DRUGS (8)
  1. RANIBIZUMAB [Suspect]
     Indication: AGE-RELATED MACULAR DEGENERATION
     Route: 050
     Dates: start: 20110810, end: 20111207
  2. RANIBIZUMAB [Suspect]
     Route: 050
     Dates: start: 20121005
  3. LOVASTATIN [Concomitant]
     Route: 065
     Dates: start: 20100910
  4. WARFARIN [Concomitant]
     Route: 065
     Dates: start: 201101
  5. FUROSEMIDE [Concomitant]
     Route: 065
     Dates: start: 201102
  6. KLOR-CON [Concomitant]
     Route: 065
     Dates: start: 201101
  7. LASIX [Concomitant]
     Indication: DYSPNOEA
     Dosage: DOSE REDUCED
     Route: 065
  8. LASIX [Concomitant]
     Route: 065

REACTIONS (1)
  - Aortic stenosis [Unknown]
